FAERS Safety Report 23718032 (Version 1)
Quarter: 2024Q2

REPORT INFORMATION
  Report Type: Spontaneous
  Country: US (occurrence: US)
  Receive Date: 20240408
  Receipt Date: 20240408
  Transmission Date: 20240715
  Serious: Yes (Life-Threatening, Other)
  Sender: FDA-Public Use
  Company Number: US-TEVA-VS-3179343

PATIENT

DRUGS (1)
  1. GABAPENTIN [Suspect]
     Active Substance: GABAPENTIN
     Indication: Product used for unknown indication
     Dosage: ACTAVIS PHARMA, 2 CAPSULES UPTO 4 TIMES PER DAY AS NEEDED
     Route: 065

REACTIONS (10)
  - Malaise [Recovered/Resolved]
  - Suicidal ideation [Recovered/Resolved]
  - Chest pain [Recovered/Resolved]
  - Vomiting [Recovered/Resolved]
  - Urinary incontinence [Not Recovered/Not Resolved]
  - Migraine [Recovered/Resolved]
  - Photophobia [Recovered/Resolved]
  - Hyperacusis [Recovered/Resolved]
  - Hot flush [Recovered/Resolved]
  - Product substitution issue [Recovered/Resolved]
